FAERS Safety Report 24444130 (Version 2)
Quarter: 2024Q4

REPORT INFORMATION
  Report Type: Report from Study
  Country: BR (occurrence: BR)
  Receive Date: 20241016
  Receipt Date: 20241020
  Transmission Date: 20250115
  Serious: Yes (Other)
  Sender: JOHNSON AND JOHNSON
  Company Number: BR-JNJFOC-20240483028

PATIENT
  Age: 27 Year
  Sex: Female
  Weight: 40 kg

DRUGS (3)
  1. INFLIXIMAB [Suspect]
     Active Substance: INFLIXIMAB
     Indication: Colitis ulcerative
     Route: 041
     Dates: start: 20240419
  2. INFLIXIMAB [Suspect]
     Active Substance: INFLIXIMAB
     Route: 041
  3. INFLIXIMAB [Suspect]
     Active Substance: INFLIXIMAB
     Indication: Colitis ulcerative
     Route: 041

REACTIONS (13)
  - Opportunistic infection [Unknown]
  - Gastrointestinal haemorrhage [Unknown]
  - Bone pain [Unknown]
  - Decreased immune responsiveness [Unknown]
  - Fungal infection [Unknown]
  - Tendonitis [Unknown]
  - Depression [Unknown]
  - Vomiting [Unknown]
  - Infusion related reaction [Recovered/Resolved]
  - COVID-19 [Unknown]
  - Sinusitis [Unknown]
  - Nausea [Unknown]
  - Off label use [Unknown]

NARRATIVE: CASE EVENT DATE: 20240419
